FAERS Safety Report 25498644 (Version 1)
Quarter: 2025Q3

REPORT INFORMATION
  Report Type: Spontaneous
  Country: US (occurrence: US)
  Receive Date: 20250701
  Receipt Date: 20250701
  Transmission Date: 20251021
  Serious: Yes (Other)
  Sender: DR REDDYS
  Company Number: US-DRL-USA-USA/2025/07/009567

PATIENT
  Age: 27 Year
  Sex: Male

DRUGS (16)
  1. AZACITIDINE [Suspect]
     Active Substance: AZACITIDINE
     Indication: Acute myeloid leukaemia
  2. AZACITIDINE [Suspect]
     Active Substance: AZACITIDINE
     Indication: Diffuse large B-cell lymphoma
  3. CYCLOPHOSPHAMIDE [Suspect]
     Active Substance: CYCLOPHOSPHAMIDE
     Indication: Acute myeloid leukaemia
  4. CYCLOPHOSPHAMIDE [Suspect]
     Active Substance: CYCLOPHOSPHAMIDE
     Indication: Diffuse large B-cell lymphoma
  5. VINCRISTINE [Suspect]
     Active Substance: VINCRISTINE
     Indication: Diffuse large B-cell lymphoma
  6. VINCRISTINE [Suspect]
     Active Substance: VINCRISTINE
     Indication: Acute myeloid leukaemia
  7. PREDNISONE [Suspect]
     Active Substance: PREDNISONE
     Indication: Diffuse large B-cell lymphoma
  8. PREDNISONE [Suspect]
     Active Substance: PREDNISONE
     Indication: Acute myeloid leukaemia
  9. OBINUTUZUMAB [Suspect]
     Active Substance: OBINUTUZUMAB
     Indication: Diffuse large B-cell lymphoma
  10. OBINUTUZUMAB [Suspect]
     Active Substance: OBINUTUZUMAB
     Indication: Acute myeloid leukaemia
  11. VENETOCLAX [Suspect]
     Active Substance: VENETOCLAX
     Indication: Diffuse large B-cell lymphoma
  12. VENETOCLAX [Suspect]
     Active Substance: VENETOCLAX
     Indication: Acute myeloid leukaemia
  13. BUSULFAN [Suspect]
     Active Substance: BUSULFAN
     Indication: Diffuse large B-cell lymphoma
  14. BUSULFAN [Suspect]
     Active Substance: BUSULFAN
     Indication: Acute myeloid leukaemia
  15. FLUDARABINE [Suspect]
     Active Substance: FLUDARABINE PHOSPHATE
     Indication: Diffuse large B-cell lymphoma
  16. FLUDARABINE [Suspect]
     Active Substance: FLUDARABINE PHOSPHATE
     Indication: Acute myeloid leukaemia

REACTIONS (7)
  - Endocarditis [Unknown]
  - Bacillus infection [Unknown]
  - Brain abscess [Unknown]
  - Clostridium difficile colitis [Unknown]
  - Deep vein thrombosis [Unknown]
  - Subdural haematoma [Unknown]
  - Product use in unapproved indication [Unknown]
